FAERS Safety Report 8132255-4 (Version None)
Quarter: 2012Q1

REPORT INFORMATION
  Report Type: 
  Country: None (occurrence: None)
  Receive Date: 20120208
  Receipt Date: 20120131
  Transmission Date: 20120608
  Serious: Yes (Hospitalization, Other)
  Sender: FDA-Public Use
  Company Number: 2012SP004756

PATIENT
  Age: 57 Year
  Sex: Male

DRUGS (1)
  1. TEMOZOLOMIDE [Suspect]
     Indication: GLIOBLASTOMA

REACTIONS (4)
  - INTRACRANIAL ANEURYSM [None]
  - CONVULSION [None]
  - SUBARACHNOID HAEMORRHAGE [None]
  - MEMORY IMPAIRMENT [None]
